FAERS Safety Report 9400426 (Version 1)
Quarter: 2013Q3

REPORT INFORMATION
  Report Type: Spontaneous
  Country: US (occurrence: None)
  Receive Date: 20130712
  Receipt Date: 20130712
  Transmission Date: 20140515
  Serious: No
  Sender: FDA-Public Use
  Company Number: None

PATIENT
  Age: 10 Year
  Sex: Male
  Weight: 40.82 kg

DRUGS (1)
  1. NOVOX [Suspect]
     Indication: LIGAMENT RUPTURE
     Route: 048
     Dates: start: 20130504, end: 20130512

REACTIONS (5)
  - Decreased appetite [None]
  - Lethargy [None]
  - Aphagia [None]
  - Movement disorder [None]
  - Product substitution issue [None]
